FAERS Safety Report 16141688 (Version 2)
Quarter: 2019Q3

REPORT INFORMATION
  Report Type: Report from Study
  Country: US (occurrence: US)
  Receive Date: 20190401
  Receipt Date: 20190701
  Transmission Date: 20191004
  Serious: No
  Sender: FDA-Public Use
  Company Number: US-CLOVIS ONCOLOGY-CLO-2019-000509

PATIENT
  Sex: Female

DRUGS (1)
  1. RUBRACA [Suspect]
     Active Substance: RUCAPARIB CAMSYLATE
     Indication: OVARIAN CANCER
     Dosage: 400 MG, BID
     Route: 048
     Dates: start: 20181024

REACTIONS (6)
  - Tongue erythema [Not Recovered/Not Resolved]
  - Abdominal pain [Not Recovered/Not Resolved]
  - Oral discomfort [Not Recovered/Not Resolved]
  - Gingivitis [Not Recovered/Not Resolved]
  - Pulmonary mass [Not Recovered/Not Resolved]
  - Glossodynia [Not Recovered/Not Resolved]
